FAERS Safety Report 6836707-6 (Version None)
Quarter: 2010Q3

REPORT INFORMATION
  Report Type: 
  Country: None (occurrence: None)
  Receive Date: 20100713
  Receipt Date: 20100629
  Transmission Date: 20110219
  Serious: Yes (Hospitalization, Other)
  Sender: FDA-Public Use
  Company Number: US-MYLANLABS-2010S1011604

PATIENT
  Age: 47 Year
  Sex: Female

DRUGS (1)
  1. METHIMAZOLE [Suspect]
     Route: 065

REACTIONS (2)
  - AGRANULOCYTOSIS [None]
  - PHARYNGEAL ABSCESS [None]
